FAERS Safety Report 11872741 (Version 1)
Quarter: 2015Q4

REPORT INFORMATION
  Report Type: Spontaneous
  Country: US (occurrence: US)
  Receive Date: 20151228
  Receipt Date: 20151228
  Transmission Date: 20160305
  Serious: Yes (Other)
  Sender: FDA-Public Use
  Company Number: US-BAYER-2015-494861

PATIENT
  Age: 44 Year
  Sex: Female
  Weight: 72.56 kg

DRUGS (1)
  1. COPPERTONE TANNING SUNSCREEN SPF 15 [Suspect]
     Active Substance: AVOBENZONE\HOMOSALATE\OCTISALATE\OCTOCRYLENE
     Dosage: UNK

REACTIONS (6)
  - Blindness [Unknown]
  - Eye irritation [None]
  - Chemical burns of eye [None]
  - Accidental exposure to product [Unknown]
  - Photophobia [None]
  - Chemical eye injury [None]
